FAERS Safety Report 4766881-7 (Version None)
Quarter: 2005Q3

REPORT INFORMATION
  Report Type: 
  Country: None (occurrence: None)
  Receive Date: 20050909
  Receipt Date: 20050830
  Transmission Date: 20060218
  Serious: Yes (Hospitalization, Other)
  Sender: FDA-Public Use
  Company Number: 2005044854

PATIENT
  Age: 61 Year
  Sex: Female
  Weight: 64 kg

DRUGS (12)
  1. CELEBREX [Suspect]
     Indication: FIBROMYALGIA
     Dosage: 400 MG (200 MG, 2 IN 1 D), ORAL
     Route: 048
     Dates: start: 20030101, end: 20040501
  2. CELEBREX [Suspect]
     Indication: INTERVERTEBRAL DISC PROTRUSION
     Dosage: 400 MG (200 MG, 2 IN 1 D), ORAL
     Route: 048
     Dates: start: 20030101, end: 20040501
  3. CELEBREX [Suspect]
     Indication: SPINAL DISORDER
     Dosage: 400 MG (200 MG, 2 IN 1 D), ORAL
     Route: 048
     Dates: start: 20030101, end: 20040501
  4. LEVOTHYROXINE SODIUM [Concomitant]
  5. AMITRIPTYLINE HCL [Concomitant]
  6. ALL OTHER THERAPEUTIC PRODUCTS (ALL OTHER THERAPEUTIC PRODUCTS) [Concomitant]
  7. ESOMEPRAZOLE (ESOMEPRAZOLE) [Concomitant]
  8. LIVIELLA (TIBOLONE) [Concomitant]
  9. BROMAZEPAM (BROMAZEPAM0 [Concomitant]
  10. BISOPROLOL (BISOPROLOL) [Concomitant]
  11. MAGNESIUM (MAGNESIUM) [Concomitant]
  12. CALCIUM (CALCIUM) [Concomitant]

REACTIONS (13)
  - ANGINA PECTORIS [None]
  - CARDIAC ARREST [None]
  - CARDIAC DISORDER [None]
  - DYSTHYMIC DISORDER [None]
  - HAEMORRHOIDS [None]
  - HEART RATE IRREGULAR [None]
  - HYPERTENSION [None]
  - HYPERTENSIVE HEART DISEASE [None]
  - PAIN [None]
  - PSYCHOGENIC PAIN DISORDER [None]
  - RECTAL PROLAPSE [None]
  - SPINAL OSTEOARTHRITIS [None]
  - TACHYCARDIA [None]
